FAERS Safety Report 24717142 (Version 3)
Quarter: 2025Q2

REPORT INFORMATION
  Report Type: Spontaneous
  Country: US (occurrence: US)
  Receive Date: 20241210
  Receipt Date: 20250424
  Transmission Date: 20250716
  Serious: Yes (Other)
  Sender: PFIZER
  Company Number: US-PFIZER INC-202400320620

PATIENT
  Age: 71 Year
  Sex: Female

DRUGS (11)
  1. XELJANZ XR [Suspect]
     Active Substance: TOFACITINIB CITRATE
     Route: 048
  2. TYLENOL [Concomitant]
     Active Substance: ACETAMINOPHEN
  3. ASPIRIN [Concomitant]
     Active Substance: ASPIRIN
  4. CARVEDILOL [Concomitant]
     Active Substance: CARVEDILOL
  5. VITAMIN D NOS [Concomitant]
     Active Substance: CHOLECALCIFEROL\ERGOCALCIFEROL
  6. FAMOTIDINE [Concomitant]
     Active Substance: FAMOTIDINE
  7. FOLIC ACID [Concomitant]
     Active Substance: FOLIC ACID
  8. HYDRALAZINE [Concomitant]
     Active Substance: HYDRALAZINE HYDROCHLORIDE
  9. LORATADINE [Concomitant]
     Active Substance: LORATADINE
  10. LOSARTAN [Concomitant]
     Active Substance: LOSARTAN
  11. METHIMAZOLE [Concomitant]
     Active Substance: METHIMAZOLE

REACTIONS (2)
  - Dementia [Recovering/Resolving]
  - Dementia Alzheimer^s type [Unknown]
